FAERS Safety Report 7496189-0 (Version None)
Quarter: 2011Q2

REPORT INFORMATION
  Report Type: 
  Country: None (occurrence: None)
  Receive Date: 20110523
  Receipt Date: 20110510
  Transmission Date: 20111010
  Serious: Yes (Other)
  Sender: FDA-Public Use
  Company Number: PHHY2011CA28725

PATIENT
  Sex: Female

DRUGS (1)
  1. ACLASTA [Suspect]
     Indication: OSTEOPOROSIS
     Dosage: 5 MG, UNK
     Route: 042
     Dates: start: 20110322

REACTIONS (9)
  - BONE PAIN [None]
  - BACK PAIN [None]
  - OEDEMA PERIPHERAL [None]
  - HEADACHE [None]
  - ABDOMINAL PAIN [None]
  - MUSCULOSKELETAL STIFFNESS [None]
  - CHEST PAIN [None]
  - ARTHRALGIA [None]
  - PAIN [None]
